FAERS Safety Report 13047459 (Version 3)
Quarter: 2017Q1

REPORT INFORMATION
  Report Type: Report from Study
  Country: DE (occurrence: DE)
  Receive Date: 20161220
  Receipt Date: 20170228
  Transmission Date: 20170428
  Serious: Yes (Hospitalization, Other)
  Sender: FDA-Public Use
  Company Number: DE-JNJFOC-20161211215

PATIENT
  Age: 63 Year
  Sex: Female
  Weight: 47 kg

DRUGS (7)
  1. BIFITERAL [Concomitant]
     Active Substance: LACTULOSE
     Route: 065
  2. OLYSIO [Suspect]
     Active Substance: SIMEPREVIR
     Indication: CHRONIC HEPATITIS C
     Route: 048
     Dates: start: 20140917, end: 20141118
  3. MIRTAZAPIN [Concomitant]
     Active Substance: MIRTAZAPINE
     Route: 065
  4. PANTOZOL [Concomitant]
     Active Substance: PANTOPRAZOLE SODIUM
     Dosage: 1 IN MORNING, 1 IN NIGHT
     Route: 065
  5. SOVALDI [Suspect]
     Active Substance: SOFOSBUVIR
     Indication: CHRONIC HEPATITIS C
     Route: 048
     Dates: start: 20140917, end: 20141118
  6. PROPRANOLOL [Concomitant]
     Active Substance: PROPRANOLOL HYDROCHLORIDE
     Indication: CARDIOVASCULAR DISORDER
     Route: 065
  7. INSIDON [Concomitant]
     Active Substance: OPIPRAMOL HYDROCHLORIDE
     Route: 065

REACTIONS (2)
  - Blood bilirubin increased [Recovering/Resolving]
  - Pancreatitis [Recovered/Resolved]

NARRATIVE: CASE EVENT DATE: 20141001
